FAERS Safety Report 9298953 (Version 1)
Quarter: 2013Q2

REPORT INFORMATION
  Report Type: Spontaneous
  Country: US (occurrence: US)
  Receive Date: 20130520
  Receipt Date: 20130520
  Transmission Date: 20140414
  Serious: No
  Sender: FDA-Public Use
  Company Number: US-SANOFI-AVENTIS-2013SA000821

PATIENT
  Age: 71 Year
  Sex: Male
  Weight: 89 kg

DRUGS (31)
  1. APIDRA SOLOSTAR [Suspect]
     Indication: TYPE 2 DIABETES MELLITUS
     Route: 058
     Dates: start: 2005
  2. APIDRA SOLOSTAR [Suspect]
     Indication: TYPE 2 DIABETES MELLITUS
     Dosage: DOSE:100 UNIT(S)
     Route: 058
     Dates: start: 2005, end: 20130129
  3. APIDRA SOLOSTAR [Suspect]
     Indication: TYPE 2 DIABETES MELLITUS
     Route: 058
     Dates: start: 20130220
  4. SOLOSTAR [Suspect]
     Indication: TYPE 2 DIABETES MELLITUS
     Dates: start: 2005
  5. SOLOSTAR [Suspect]
     Indication: TYPE 2 DIABETES MELLITUS
     Dates: start: 2005, end: 20130129
  6. SOLOSTAR [Suspect]
     Indication: TYPE 2 DIABETES MELLITUS
     Dates: start: 20130220
  7. OPTICLICK [Suspect]
  8. LANTUS SOLOSTAR [Concomitant]
     Indication: TYPE 2 DIABETES MELLITUS
  9. LANTUS SOLOSTAR [Concomitant]
     Indication: TYPE 2 DIABETES MELLITUS
     Dosage: DOSE:40 UNIT(S)
  10. SOLOSTAR [Concomitant]
     Indication: TYPE 2 DIABETES MELLITUS
  11. METFORMIN [Concomitant]
  12. NOVOLOG [Concomitant]
  13. VICTOZA [Concomitant]
  14. ECOTRIN [Concomitant]
     Route: 048
  15. LIPITOR [Concomitant]
     Route: 048
  16. CHLORZOXAZONE/PARACETAMOL [Concomitant]
     Indication: MUSCLE SPASMS
  17. VITAMIN D3 [Concomitant]
     Dosage: DOSE:1000 UNIT(S)
  18. VOLTAREN [Concomitant]
     Indication: ARTHRITIS
     Route: 048
  19. NEXIUM [Concomitant]
     Indication: GASTROOESOPHAGEAL REFLUX DISEASE
     Route: 048
  20. GLUCAGEN [Concomitant]
     Indication: HYPOGLYCAEMIA
     Route: 058
  21. LANTUS [Concomitant]
     Dosage: DOSE:40-45 UNITS; AS INSTRUCTED
  22. INSULIN GLULISINE [Concomitant]
     Dosage: DOSE:16-30UNITS WITH MEALS AND SNACKS
     Route: 058
  23. LIRAGLUTIDE [Concomitant]
     Route: 058
  24. LISINOPRIL [Concomitant]
     Route: 048
  25. MAGNESIUM [Concomitant]
  26. GLUCOPHAGE [Concomitant]
     Indication: DIABETES MELLITUS
     Route: 048
  27. CENTRUM SILVER [Concomitant]
  28. LOPRESSOR [Concomitant]
     Route: 048
  29. FISH OIL [Concomitant]
  30. FLOMAX [Concomitant]
     Route: 048
  31. KENALOG [Concomitant]
     Route: 061

REACTIONS (6)
  - Blood glucose increased [Recovered/Resolved]
  - Drug ineffective [Unknown]
  - Drug ineffective [Unknown]
  - Hypoacusis [Recovered/Resolved]
  - Blood glucose decreased [Recovered/Resolved]
  - Overdose [Unknown]
